FAERS Safety Report 17310513 (Version 1)
Quarter: 2020Q1

REPORT INFORMATION
  Report Type: Spontaneous
  Country: US (occurrence: US)
  Receive Date: 20200123
  Receipt Date: 20200123
  Transmission Date: 20200409
  Serious: Yes (Hospitalization)
  Sender: FDA-Public Use
  Company Number: US-HISAMITSU-2020-US-000594

PATIENT
  Age: 83 Year
  Sex: Male
  Weight: 68.04 kg

DRUGS (5)
  1. SALONPAS PAIN RELIEVING [Suspect]
     Active Substance: CAMPHOR (SYNTHETIC)\MENTHOL\METHYL SALICYLATE
     Indication: ANALGESIC THERAPY
     Dosage: INTERMITTENT USE: ONE PATCH ON SHOULDER, REMOVED AFTER 2.5 HOURS
     Route: 061
     Dates: start: 201908, end: 20200109
  2. ATENOLOL. [Concomitant]
     Active Substance: ATENOLOL
     Dosage: 50MG TWICE DAILY
  3. ZOCOR [Concomitant]
     Active Substance: SIMVASTATIN
     Dosage: 1 TABLET TWICE DAILY
  4. NEXIUM [Concomitant]
     Active Substance: ESOMEPRAZOLE MAGNESIUM
     Dosage: 1 CAPSULE TWICE DAILY
  5. HYDRALAZINE [Concomitant]
     Active Substance: HYDRALAZINE HYDROCHLORIDE
     Dosage: 10MG TWICE DAILY

REACTIONS (1)
  - Blood pressure increased [Unknown]

NARRATIVE: CASE EVENT DATE: 20190829
